FAERS Safety Report 5757903-5 (Version None)
Quarter: 2008Q2

REPORT INFORMATION
  Report Type: 
  Country: None (occurrence: None)
  Receive Date: 20080603
  Receipt Date: 20080603
  Transmission Date: 20081010
  Serious: No
  Sender: FDA-Public Use
  Company Number: None

PATIENT
  Age: 32 Year
  Sex: Female
  Weight: 58.9676 kg

DRUGS (2)
  1. QUASENSE [Suspect]
     Indication: CONTRACEPTION
     Dosage: 1 TAB QD PO
     Route: 048
     Dates: start: 20071101, end: 20080401
  2. QUASENSE [Suspect]
     Indication: ENDOMETRIOSIS
     Dosage: 1 TAB QD PO
     Route: 048
     Dates: start: 20071101, end: 20080401

REACTIONS (6)
  - BREAST ENLARGEMENT [None]
  - METRORRHAGIA [None]
  - MOOD SWINGS [None]
  - MUSCLE SPASMS [None]
  - THERAPEUTIC RESPONSE UNEXPECTED WITH DRUG SUBSTITUTION [None]
  - WEIGHT INCREASED [None]
